FAERS Safety Report 13975211 (Version 2)
Quarter: 2017Q4

REPORT INFORMATION
  Report Type: Report from Study
  Country: AU (occurrence: AU)
  Receive Date: 20170915
  Receipt Date: 20171109
  Transmission Date: 20180321
  Serious: Yes (Other)
  Sender: FDA-Public Use
  Company Number: AU-REGENERON PHARMACEUTICALS, INC.-2016-21826

PATIENT

DRUGS (3)
  1. VALIUM [Concomitant]
     Active Substance: DIAZEPAM
     Indication: PRODUCT USED FOR UNKNOWN INDICATION
     Dosage: ONE-HALF TABLET WITH INJECTION
  2. EYLEA [Suspect]
     Active Substance: AFLIBERCEPT
     Indication: RETINAL VEIN OCCLUSION
     Dosage: 2 MG, Q6WK, LEFT EYE
     Route: 031
     Dates: start: 20160614, end: 201708
  3. EYLEA [Suspect]
     Active Substance: AFLIBERCEPT
     Indication: NEOVASCULAR AGE-RELATED MACULAR DEGENERATION
     Dosage: UNK MG, UNK

REACTIONS (12)
  - Intraocular pressure increased [Not Recovered/Not Resolved]
  - Fear of injection [Not Recovered/Not Resolved]
  - Foot deformity [Unknown]
  - Vision blurred [Recovered/Resolved]
  - Eye pain [Recovered/Resolved]
  - Eye disorder [Recovered/Resolved]
  - Injection site pain [Not Recovered/Not Resolved]
  - Ocular hyperaemia [Unknown]
  - Cataract [Not Recovered/Not Resolved]
  - Eye swelling [Recovering/Resolving]
  - Fear of injection [Recovered/Resolved]
  - Discomfort [Recovering/Resolving]

NARRATIVE: CASE EVENT DATE: 20160830
